FAERS Safety Report 7202950-X (Version None)
Quarter: 2010Q4

REPORT INFORMATION
  Report Type: 
  Country: None (occurrence: None)
  Receive Date: 20101229
  Receipt Date: 20101222
  Transmission Date: 20110411
  Serious: Yes (Other)
  Sender: FDA-Public Use
  Company Number: GB-ABBOTT-10P-167-0693591-00

PATIENT
  Age: 52 Year
  Sex: Female

DRUGS (1)
  1. PROSTAP 3 [Suspect]
     Indication: ENDOMETRIOSIS
     Dates: start: 20100901

REACTIONS (2)
  - LEUKOPENIA [None]
  - NEUTROPENIA [None]
